FAERS Safety Report 12639514 (Version 1)
Quarter: 2016Q3

REPORT INFORMATION
  Report Type: Spontaneous
  Country: GB (occurrence: GB)
  Receive Date: 20160810
  Receipt Date: 20160810
  Transmission Date: 20161109
  Serious: Yes (Hospitalization, Other)
  Sender: FDA-Public Use
  Company Number: GB-BAXTER-2016BAX041063

PATIENT
  Age: 2 Year
  Sex: Male

DRUGS (2)
  1. HEPARIN SODIUM AND SODIUM CHLORIDE [Suspect]
     Active Substance: HEPARIN SODIUM
     Indication: PRODUCT USED FOR UNKNOWN INDICATION
     Route: 065
     Dates: start: 20160728
  2. SODIUM CHLORIDE INTRAVENOUS INFUSION BP 0.9% W/V [Suspect]
     Active Substance: SODIUM CHLORIDE
     Indication: CATHETER MANAGEMENT
     Route: 065
     Dates: start: 20160728

REACTIONS (5)
  - Overdose [Unknown]
  - Bleeding time prolonged [Unknown]
  - Haemorrhage [Unknown]
  - Blood pressure systolic decreased [Unknown]
  - Laceration [Unknown]

NARRATIVE: CASE EVENT DATE: 20160728
